FAERS Safety Report 10365071 (Version 3)
Quarter: 2014Q3

REPORT INFORMATION
  Report Type: Spontaneous
  Country: US (occurrence: None)
  Receive Date: 20140804
  Receipt Date: 20140822
  Transmission Date: 20150326
  Serious: Yes (Hospitalization, Congenital Anomaly, Other)
  Sender: FDA-Public Use
  Company Number: 2014AP003776

PATIENT
  Age: 0 Day
  Sex: Female
  Weight: 2.7 kg

DRUGS (6)
  1. PAXIL [Suspect]
     Active Substance: PAROXETINE HYDROCHLORIDE
     Indication: FOETAL EXPOSURE DURING PREGNANCY
     Route: 064
     Dates: start: 2001, end: 20040825
  2. PYRIDOXINE ( PYRIDOXINE) [Concomitant]
  3. FOLIC ACID. [Concomitant]
     Active Substance: FOLIC ACID
  4. SALBUTAMOL SULFATE [Concomitant]
     Active Substance: ALBUTEROL SULFATE
  5. AZITHROMYCIN [Concomitant]
     Active Substance: AZITHROMYCIN ANHYDROUS
  6. PRENATAL VITAMINS/0742601/ASCORBIC ACID, BIOTIN, MINERAL NOS, NICOTINIC ACID, RETINOL, TOCOPHEROL, VITAMIN B NOS, VITAMIN D NOS) [Concomitant]

REACTIONS (6)
  - Congenital central nervous system anomaly [None]
  - Schizencephaly [None]
  - Deafness [None]
  - Maternal drugs affecting foetus [None]
  - Deafness neurosensory [None]
  - Congenital hearing disorder [None]

NARRATIVE: CASE EVENT DATE: 20040830
